FAERS Safety Report 9766425 (Version 1)
Quarter: 2013Q4

REPORT INFORMATION
  Report Type: Spontaneous
  Country: US (occurrence: US)
  Receive Date: 20131217
  Receipt Date: 20131217
  Transmission Date: 20140711
  Serious: No
  Sender: FDA-Public Use
  Company Number: US-GLAXOSMITHKLINE-A1027532A

PATIENT
  Age: 54 Year
  Sex: Male

DRUGS (3)
  1. VOTRIENT [Suspect]
     Indication: BONE CANCER
     Dosage: 600MG PER DAY
     Route: 048
     Dates: start: 20130206
  2. LOSARTAN [Concomitant]
  3. IMODIUM [Concomitant]

REACTIONS (2)
  - Diarrhoea [Recovered/Resolved]
  - Dysgeusia [Unknown]
